FAERS Safety Report 5011885-2 (Version None)
Quarter: 2006Q2

REPORT INFORMATION
  Report Type: 
  Country: None (occurrence: None)
  Receive Date: 20060524
  Receipt Date: 20060524
  Transmission Date: 20061013
  Serious: Yes (Hospitalization)
  Sender: FDA-Public Use
  Company Number: None

PATIENT
  Age: 63 Year
  Sex: Male
  Weight: 80 kg

DRUGS (2)
  1. HYDROCHLOROTHIAZIDE [Suspect]
     Dosage: 25 MG  1 Q DAILY  PO
     Route: 048
     Dates: start: 20040630, end: 20051222
  2. VENLAFAXINE HCL [Suspect]
     Dosage: 75 MG   1 Q DAILY  PO
     Route: 048
     Dates: start: 20040330, end: 20051222

REACTIONS (4)
  - ASTHENIA [None]
  - FATIGUE [None]
  - HYPONATRAEMIA [None]
  - ILL-DEFINED DISORDER [None]
